FAERS Safety Report 25959401 (Version 3)
Quarter: 2025Q4

REPORT INFORMATION
  Report Type: Spontaneous
  Country: CA (occurrence: CA)
  Receive Date: 20251025
  Receipt Date: 20251114
  Transmission Date: 20260118
  Serious: Yes (Hospitalization, Other)
  Sender: CELLTRION
  Company Number: CA-CELLTRION INC.-2025CA032746

PATIENT

DRUGS (1)
  1. INFLIXIMAB [Suspect]
     Active Substance: INFLIXIMAB
     Indication: Colitis ulcerative
     Dosage: EVERY 8 WEEKS
     Route: 042
     Dates: start: 20250516, end: 202510

REACTIONS (5)
  - Sigmoidoscopy [Unknown]
  - Treatment failure [Unknown]
  - Product availability issue [Unknown]
  - Product dose omission issue [Unknown]
  - Drug effect less than expected [Unknown]
